FAERS Safety Report 4280467-2 (Version None)
Quarter: 2004Q1

REPORT INFORMATION
  Report Type: 
  Country: None (occurrence: None)
  Receive Date: 20040127
  Receipt Date: 20040122
  Transmission Date: 20041129
  Serious: Yes (Death)
  Sender: FDA-Public Use
  Company Number: CA-JNJFOC-20040104382

PATIENT
  Age: 53 Year
  Sex: Male

DRUGS (1)
  1. ITRACONAZOLE [Suspect]
     Dosage: INTRAVENOUS
     Route: 042

REACTIONS (1)
  - DEATH [None]
